FAERS Safety Report 14723114 (Version 1)
Quarter: 2018Q2

REPORT INFORMATION
  Report Type: Spontaneous
  Country: AU (occurrence: AU)
  Receive Date: 20180405
  Receipt Date: 20180405
  Transmission Date: 20180711
  Serious: Yes (Other)
  Sender: FDA-Public Use
  Company Number: AU-TEVA-2018-AU-876048

PATIENT
  Age: 34 Year
  Sex: Male

DRUGS (1)
  1. MODAVIGIL [Suspect]
     Active Substance: MODAFINIL
     Dosage: MODAVIGIL 100MG
     Route: 048

REACTIONS (7)
  - Malaise [Unknown]
  - Acute kidney injury [Unknown]
  - Diarrhoea [Unknown]
  - Pyrexia [Unknown]
  - Vomiting [Unknown]
  - Hypotension [Unknown]
  - Nausea [Unknown]
